FAERS Safety Report 10149046 (Version 2)
Quarter: 2014Q2

REPORT INFORMATION
  Report Type: Spontaneous
  Country: IN (occurrence: IN)
  Receive Date: 20140502
  Receipt Date: 20140617
  Transmission Date: 20141212
  Serious: Yes (Other)
  Sender: FDA-Public Use
  Company Number: IN-JNJFOC-20140416926

PATIENT
  Sex: 0

DRUGS (2)
  1. RISPERDAL CONSTA [Suspect]
     Indication: SCHIZOPHRENIA
     Route: 030
  2. RISPERDAL CONSTA [Suspect]
     Indication: SCHIZOPHRENIA
     Route: 030

REACTIONS (4)
  - Dyspnoea [Recovering/Resolving]
  - Scar [Recovering/Resolving]
  - Extrapyramidal disorder [Recovering/Resolving]
  - Drug ineffective [Unknown]
